FAERS Safety Report 15879310 (Version 1)
Quarter: 2019Q1

REPORT INFORMATION
  Report Type: Spontaneous
  Country: US (occurrence: US)
  Receive Date: 20190103
  Receipt Date: 20190103
  Transmission Date: 20190417
  Serious: No
  Sender: FDA-Public Use
  Company Number: None

PATIENT
  Age: 59 Year
  Sex: Male

DRUGS (1)
  1. HUMIRA [Suspect]
     Active Substance: ADALIMUMAB
     Indication: JUVENILE IDIOPATHIC ARTHRITIS
     Route: 058
     Dates: start: 20180523

REACTIONS (4)
  - Neuropathy peripheral [None]
  - Drug effect decreased [None]
  - Arthralgia [None]
  - Ear infection [None]

NARRATIVE: CASE EVENT DATE: 20181103
